FAERS Safety Report 7424280-3 (Version None)
Quarter: 2011Q2

REPORT INFORMATION
  Report Type: 
  Country: None (occurrence: None)
  Receive Date: 20110413
  Receipt Date: 20110329
  Transmission Date: 20111010
  Serious: Yes (Other)
  Sender: FDA-Public Use
  Company Number: TOR-2011-0013

PATIENT
  Age: 62 Year
  Sex: Female

DRUGS (2)
  1. TAMOXIFEN CITRATE [Concomitant]
  2. FARESTON [Suspect]
     Indication: BREAST CANCER
     Dosage: 120MG/DAY/ORAL
     Route: 048
     Dates: start: 20080920, end: 20081114

REACTIONS (1)
  - HEPATIC FUNCTION ABNORMAL [None]
